FAERS Safety Report 25769633 (Version 1)
Quarter: 2025Q3

REPORT INFORMATION
  Report Type: Spontaneous
  Country: US (occurrence: US)
  Receive Date: 20250906
  Receipt Date: 20250906
  Transmission Date: 20251021
  Serious: No
  Sender: ELI LILLY AND COMPANY
  Company Number: US-ELI_LILLY_AND_COMPANY-US202509003011

PATIENT
  Age: 55 Year
  Sex: Female

DRUGS (2)
  1. ZEPBOUND [Suspect]
     Active Substance: TIRZEPATIDE
     Indication: Weight control
     Dosage: 2.5 MG, WEEKLY (1/W)
     Route: 058
     Dates: start: 20250815
  2. WELLBUTRIN [Suspect]
     Active Substance: BUPROPION HYDROCHLORIDE
     Indication: Product used for unknown indication
     Route: 065

REACTIONS (5)
  - Hunger [Unknown]
  - Accidental underdose [Unknown]
  - Thirst [Unknown]
  - Faeces hard [Unknown]
  - Injection site pain [Unknown]

NARRATIVE: CASE EVENT DATE: 20250801
